FAERS Safety Report 6229945-7 (Version None)
Quarter: 2009Q2

REPORT INFORMATION
  Report Type: 
  Country: None (occurrence: None)
  Receive Date: 20090615
  Receipt Date: 20090608
  Transmission Date: 20091009
  Serious: Yes (Hospitalization, Other)
  Sender: FDA-Public Use
  Company Number: US-ELI_LILLY_AND_COMPANY-US200906001821

PATIENT
  Sex: Female
  Weight: 156.1 kg

DRUGS (6)
  1. BYETTA [Suspect]
     Indication: TYPE 2 DIABETES MELLITUS
     Dosage: 5 UG, 2/D
     Route: 058
     Dates: start: 20050101, end: 20050101
  2. BYETTA [Suspect]
     Dosage: 10 UG, 2/D
     Route: 058
     Dates: start: 20050101, end: 20070401
  3. CELEBREX [Concomitant]
     Dosage: UNK, UNKNOWN
     Dates: end: 20061101
  4. FUROSEMIDE [Concomitant]
     Dosage: UNK, UNKNOWN
     Dates: start: 19790101
  5. GLUCOTROL [Concomitant]
     Indication: DIABETES MELLITUS
     Dosage: UNK, UNKNOWN
     Dates: end: 20071101
  6. GLUCOPHAGE [Concomitant]
     Indication: DIABETES MELLITUS
     Dosage: UNK, UNKNOWN
     Dates: end: 20071101

REACTIONS (5)
  - LIVER DISORDER [None]
  - OEDEMA PERIPHERAL [None]
  - RENAL DISORDER [None]
  - RENAL FAILURE CHRONIC [None]
  - WEIGHT DECREASED [None]
